FAERS Safety Report 24869555 (Version 1)
Quarter: 2025Q1

REPORT INFORMATION
  Report Type: Spontaneous
  Country: US (occurrence: US)
  Receive Date: 20250121
  Receipt Date: 20250121
  Transmission Date: 20250409
  Serious: Yes (Hospitalization)
  Sender: INCYTE
  Company Number: US-EVENT-001254

PATIENT

DRUGS (5)
  1. PEMAZYRE [Suspect]
     Active Substance: PEMIGATINIB
     Indication: Cholangiocarcinoma
     Route: 065
  2. PEMAZYRE [Suspect]
     Active Substance: PEMIGATINIB
     Route: 065
  3. PEMAZYRE [Suspect]
     Active Substance: PEMIGATINIB
     Route: 065
     Dates: start: 2024, end: 202501
  4. RANOLAZINE [Concomitant]
     Active Substance: RANOLAZINE
     Indication: Product used for unknown indication
     Route: 065
  5. VITAMINS NOS [Concomitant]
     Active Substance: VITAMINS
     Indication: Product used for unknown indication
     Route: 065

REACTIONS (15)
  - Ill-defined disorder [Unknown]
  - Body fat disorder [Unknown]
  - Fall [Unknown]
  - Ageusia [Unknown]
  - Hypersomnia [Unknown]
  - Laboratory test abnormal [Unknown]
  - Cardiac disorder [Unknown]
  - Blood disorder [Unknown]
  - Blood pressure abnormal [Unknown]
  - Wrong technique in product usage process [Unknown]
  - Rash [Unknown]
  - Dizziness [Unknown]
  - Drug ineffective [Unknown]
  - Asthenia [Unknown]
  - Fatigue [Unknown]
